FAERS Safety Report 12870224 (Version 1)
Quarter: 2016Q4

REPORT INFORMATION
  Report Type: Spontaneous
  Country: BR (occurrence: BR)
  Receive Date: 20161021
  Receipt Date: 20161021
  Transmission Date: 20170207
  Serious: Yes (Other)
  Sender: FDA-Public Use
  Company Number: BR-PFIZER INC-2016489539

PATIENT
  Age: 19 Year
  Sex: Female
  Weight: 38 kg

DRUGS (1)
  1. DOSTINEX [Suspect]
     Active Substance: CABERGOLINE
     Indication: BLOOD PROLACTIN INCREASED
     Dosage: 0.5 MG, 1 TABLET PER WEEK
     Route: 048
     Dates: start: 201605, end: 2016

REACTIONS (2)
  - Blood prolactin increased [Unknown]
  - Pituitary tumour benign [Unknown]

NARRATIVE: CASE EVENT DATE: 2016
